FAERS Safety Report 4773882-1 (Version None)
Quarter: 2005Q3

REPORT INFORMATION
  Report Type: 
  Country: None (occurrence: None)
  Receive Date: 20050920
  Receipt Date: 20050916
  Transmission Date: 20060218
  Serious: Yes (Hospitalization)
  Sender: FDA-Public Use
  Company Number: HQWYE273707SEP05

PATIENT
  Age: 43 Year
  Sex: Male

DRUGS (3)
  1. GEMTUZUMAB OZOGAMICIN (GEMTUZUMAB OZOGAMICIN, INJECTION) [Suspect]
     Dosage: 9 MG 1X PER 1 DAY
     Dates: start: 20050808, end: 20050808
  2. IDARUBICIN HCL [Concomitant]
  3. CYTARABINE [Concomitant]

REACTIONS (1)
  - INTERSTITIAL LUNG DISEASE [None]
